FAERS Safety Report 6204705-1 (Version None)
Quarter: 2009Q2

REPORT INFORMATION
  Report Type: 
  Country: None (occurrence: None)
  Receive Date: 20090527
  Receipt Date: 20090518
  Transmission Date: 20091009
  Serious: Yes (Other)
  Sender: FDA-Public Use
  Company Number: PHHY2009NO19408

PATIENT
  Sex: Male

DRUGS (5)
  1. EXFORGE [Suspect]
     Indication: HYPERTENSION
     Dosage: 5/160 MG, QD
     Dates: start: 20090310, end: 20090401
  2. REMERON [Concomitant]
     Indication: DEPRESSION
     Dosage: 30 MG DAILY
     Route: 048
     Dates: start: 20061108
  3. SIMVASTATIN [Concomitant]
     Indication: HYPERCHOLESTEROLAEMIA
     Dosage: 20 MG DAILY
     Route: 048
  4. ALBYL-E [Concomitant]
     Indication: MYOCARDIAL ISCHAEMIA
     Dosage: 160 MG DAILY
     Route: 048
  5. NORMORIX MITE [Concomitant]
     Indication: HYPERTENSION
     Dosage: 0.5 DF DAILY
     Route: 048

REACTIONS (1)
  - RAYNAUD'S PHENOMENON [None]
